FAERS Safety Report 12051577 (Version 1)
Quarter: 2016Q1

REPORT INFORMATION
  Report Type: Spontaneous
  Country: US (occurrence: None)
  Receive Date: 20160208
  Receipt Date: 20160208
  Transmission Date: 20160526
  Serious: Yes (Death)
  Sender: FDA-Public Use
  Company Number: None

PATIENT
  Age: 70 Year
  Sex: Male
  Weight: 66.6 kg

DRUGS (12)
  1. OPDIVO [Suspect]
     Active Substance: NIVOLUMAB
     Indication: LUNG NEOPLASM MALIGNANT
     Dosage: 3MG/KG EVER 2 WEEKS
     Dates: start: 20151210, end: 20160121
  2. BENZTROPINE [Concomitant]
     Active Substance: BENZTROPINE
  3. GABAPENTIN. [Concomitant]
     Active Substance: GABAPENTIN
  4. METOPROLOL. [Concomitant]
     Active Substance: METOPROLOL
  5. MEROPENEM. [Concomitant]
     Active Substance: MEROPENEM
  6. VANCOMYCIN [Concomitant]
     Active Substance: VANCOMYCIN
  7. NOVOLOG SLIDING SCALE [Concomitant]
  8. CHLOPROMAZINE [Concomitant]
  9. ASPIRIN. [Concomitant]
     Active Substance: ASPIRIN
  10. AZITHROMYCIN ANHYDROUS. [Concomitant]
     Active Substance: AZITHROMYCIN ANHYDROUS
  11. METHYLPREDNISOLONE. [Concomitant]
     Active Substance: METHYLPREDNISOLONE
  12. RANITIDINE [Concomitant]
     Active Substance: RANITIDINE\RANITIDINE HYDROCHLORIDE

REACTIONS (6)
  - Hypoxia [None]
  - Pulmonary oedema [None]
  - Cardiac arrest [None]
  - Respiratory arrest [None]
  - Anaemia [None]
  - Pneumonitis [None]

NARRATIVE: CASE EVENT DATE: 20160204
